FAERS Safety Report 18062910 (Version 2)
Quarter: 2020Q3

REPORT INFORMATION
  Report Type: Spontaneous
  Country: US (occurrence: US)
  Receive Date: 20200723
  Receipt Date: 20200730
  Transmission Date: 20201103
  Serious: Yes (Other)
  Sender: FDA-Public Use
  Company Number: US-GE HEALTHCARE LIFE SCIENCES-2020CSU003122

PATIENT
  Age: 37 Year
  Sex: Female
  Weight: 163 kg

DRUGS (4)
  1. OMNIPAQUE [Suspect]
     Active Substance: IOHEXOL
     Indication: COMPUTERISED TOMOGRAM ABDOMEN
     Dosage: 40 ML, SINGLE
     Route: 040
     Dates: start: 20200717, end: 20200717
  2. OMNIPAQUE [Suspect]
     Active Substance: IOHEXOL
     Indication: COMPUTERISED TOMOGRAM PELVIS
  3. OMNIPAQUE [Suspect]
     Active Substance: IOHEXOL
     Indication: ABDOMINAL PAIN LOWER
  4. OMNIPAQUE [Suspect]
     Active Substance: IOHEXOL
     Indication: NAUSEA

REACTIONS (6)
  - Erythema [Recovered/Resolved]
  - Dyspnoea [Recovered/Resolved]
  - Contrast media reaction [Recovered/Resolved]
  - Lacrimation increased [Recovered/Resolved]
  - Chest discomfort [Recovered/Resolved]
  - Sneezing [Recovered/Resolved]

NARRATIVE: CASE EVENT DATE: 20200717
